FAERS Safety Report 8677507 (Version 2)
Quarter: 2013Q1

REPORT INFORMATION
  Report Type: Spontaneous
  Country: AR (occurrence: AR)
  Receive Date: 20120723
  Receipt Date: 20130322
  Transmission Date: 20140127
  Serious: Yes (Death, Hospitalization)
  Sender: FDA-Public Use
  Company Number: PHHY2012AR062443

PATIENT
  Age: 87 Year
  Sex: Female

DRUGS (1)
  1. EXELON PATCH [Suspect]
     Indication: DEMENTIA ALZHEIMER^S TYPE
     Dosage: 9.5 MG/24 HOURS (10 CM)
     Route: 062
     Dates: start: 201206

REACTIONS (3)
  - Cardio-respiratory arrest [Fatal]
  - Feeling abnormal [Recovering/Resolving]
  - Anxiety [Recovering/Resolving]
